FAERS Safety Report 25885798 (Version 1)
Quarter: 2025Q4

REPORT INFORMATION
  Report Type: Spontaneous
  Country: US (occurrence: US)
  Receive Date: 20251006
  Receipt Date: 20251006
  Transmission Date: 20260118
  Serious: No
  Sender: GLAXOSMITHKLINE
  Company Number: US-GSK-US2025115129

PATIENT
  Age: 63 Year
  Sex: Female

DRUGS (2)
  1. ANORO ELLIPTA [Suspect]
     Active Substance: UMECLIDINIUM BROMIDE\VILANTEROL TRIFENATATE
     Indication: Emphysema
     Dosage: UNK
     Dates: start: 20250812, end: 20250903
  2. LEVOTHYROXINE [Concomitant]
     Active Substance: LEVOTHYROXINE
     Indication: Autoimmune thyroiditis

REACTIONS (4)
  - Heart rate increased [Recovered/Resolved]
  - Pollakiuria [Not Recovered/Not Resolved]
  - Coronary artery disease [Unknown]
  - Liver disorder [Unknown]

NARRATIVE: CASE EVENT DATE: 20250827
